FAERS Safety Report 9835882 (Version 1)
Quarter: 2014Q1

REPORT INFORMATION
  Report Type: Report from Study
  Country: US (occurrence: US)
  Receive Date: 20140122
  Receipt Date: 20140122
  Transmission Date: 20141002
  Serious: Yes (Other)
  Sender: FDA-Public Use
  Company Number: US-ACTELION-A-NJ2014-94018

PATIENT
  Age: 61 Year
  Sex: Female

DRUGS (1)
  1. TRACLEER [Suspect]
     Indication: SYSTEMIC SCLEROSIS
     Dosage: UNK
     Route: 048

REACTIONS (1)
  - Kidney infection [Unknown]
